FAERS Safety Report 24306045 (Version 1)
Quarter: 2024Q3

REPORT INFORMATION
  Report Type: Spontaneous
  Country: US (occurrence: US)
  Receive Date: 20240911
  Receipt Date: 20240911
  Transmission Date: 20241016
  Serious: Yes (Hospitalization)
  Sender: CHEPLAPHARM
  Company Number: US-ROCHE-10000072795

PATIENT
  Age: 52 Year
  Sex: Male
  Weight: 102.9 kg

DRUGS (2)
  1. CAPECITABINE [Suspect]
     Active Substance: CAPECITABINE
     Indication: Colorectal cancer metastatic
  2. SORAFENIB [Suspect]
     Active Substance: SORAFENIB
     Indication: Colorectal cancer metastatic

REACTIONS (10)
  - Impaired work ability [Unknown]
  - Palmar-plantar erythrodysaesthesia syndrome [Unknown]
  - Hepatic pain [Unknown]
  - Nausea [Unknown]
  - Hepatic failure [Unknown]
  - Disease progression [Unknown]
  - Dysstasia [Unknown]
  - Vomiting [Unknown]
  - Constipation [Unknown]
  - Drug ineffective [Unknown]
